FAERS Safety Report 4764000-4 (Version None)
Quarter: 2005Q3

REPORT INFORMATION
  Report Type: 
  Country: None (occurrence: None)
  Receive Date: 20050908
  Receipt Date: 20050831
  Transmission Date: 20060218
  Serious: Yes (Death, Other)
  Sender: FDA-Public Use
  Company Number: IT-MERCK-0509USA00283

PATIENT
  Age: 58 Year
  Sex: Female

DRUGS (7)
  1. DECADRON [Suspect]
     Indication: PROPHYLAXIS OF NAUSEA AND VOMITING
     Route: 048
     Dates: start: 20040101
  2. DOCETAXEL [Suspect]
     Indication: OESOPHAGEAL CANCER METASTATIC
     Route: 065
     Dates: start: 20040101
  3. DOCETAXEL [Suspect]
     Indication: METASTASES TO LIVER
     Route: 065
     Dates: start: 20040101
  4. CISPLATIN [Concomitant]
     Indication: OESOPHAGEAL CANCER METASTATIC
     Route: 065
     Dates: start: 20040101
  5. CISPLATIN [Concomitant]
     Indication: METASTASES TO LIVER
     Route: 065
     Dates: start: 20040101
  6. FLUOROURACIL [Suspect]
     Indication: OESOPHAGEAL CANCER METASTATIC
     Route: 065
     Dates: start: 20040101
  7. FLUOROURACIL [Suspect]
     Indication: METASTASES TO LIVER
     Route: 065
     Dates: start: 20040101

REACTIONS (9)
  - ASTHENIA [None]
  - DEATH [None]
  - DRUG TOXICITY [None]
  - IMPAIRED HEALING [None]
  - LARGE INTESTINE PERFORATION [None]
  - NAUSEA [None]
  - PERITONITIS [None]
  - POST PROCEDURAL COMPLICATION [None]
  - THERAPY NON-RESPONDER [None]
